FAERS Safety Report 10077667 (Version 1)
Quarter: 2014Q2

REPORT INFORMATION
  Report Type: Spontaneous
  Country: US (occurrence: US)
  Receive Date: 20140414
  Receipt Date: 20140414
  Transmission Date: 20141212
  Serious: No
  Sender: FDA-Public Use
  Company Number: US-BANPHARM-20142087

PATIENT
  Age: 70 Year
  Sex: Male
  Weight: 88.45 kg

DRUGS (6)
  1. ALEVE LIQUID GELS 220 MG [Suspect]
     Indication: PAIN
     Dosage: 2 DF, PRN,
     Route: 048
     Dates: start: 2005
  2. EQUATE MULTI VITAMIN [Concomitant]
  3. SPRING VALLEY VITAMIN C [Concomitant]
  4. SPRING VALLEY FISH OIL [Concomitant]
  5. SPRING VALLEY VITAMIN E [Concomitant]
  6. SPRING VALLEY CALCIUM + D [Concomitant]

REACTIONS (2)
  - Dysgeusia [Recovered/Resolved]
  - Abdominal discomfort [Recovered/Resolved]
